FAERS Safety Report 6879246-9 (Version None)
Quarter: 2010Q3

REPORT INFORMATION
  Report Type: 
  Country: None (occurrence: None)
  Receive Date: 20100728
  Receipt Date: 20100118
  Transmission Date: 20110219
  Serious: No
  Sender: FDA-Public Use
  Company Number: US-ABBOTT-10P-163-0620638-00

PATIENT
  Sex: Female
  Weight: 53.118 kg

DRUGS (1)
  1. SYNTHROID [Suspect]
     Indication: HYPOTHYROIDISM
     Route: 048
     Dates: start: 20030101

REACTIONS (5)
  - EXPIRED DRUG ADMINISTERED [None]
  - LIP SWELLING [None]
  - OEDEMA PERIPHERAL [None]
  - PRURITUS [None]
  - URTICARIA [None]
